FAERS Safety Report 22245163 (Version 1)
Quarter: 2023Q2

REPORT INFORMATION
  Report Type: Spontaneous
  Country: CA (occurrence: CA)
  Receive Date: 20230424
  Receipt Date: 20230424
  Transmission Date: 20230722
  Serious: Yes (Hospitalization, Other)
  Sender: FDA-Public Use
  Company Number: CA-AUROBINDO-AUR-APL-2023-031335

PATIENT
  Age: 78 Year
  Sex: Male
  Weight: 76 kg

DRUGS (1)
  1. CIPROFLOXACIN HYDROCHLORIDE [Suspect]
     Active Substance: CIPROFLOXACIN HYDROCHLORIDE
     Indication: Cystitis
     Dosage: 500 MILLIGRAM, TWO TIMES A DAY
     Route: 048

REACTIONS (9)
  - Autonomic nervous system imbalance [Unknown]
  - Demyelination [Unknown]
  - Dysphagia [Unknown]
  - Facial asymmetry [Unknown]
  - Hyperaesthesia [Unknown]
  - Hyporeflexia [Unknown]
  - Hypotonia [Unknown]
  - Muscular weakness [Unknown]
  - Paraesthesia [Unknown]
